FAERS Safety Report 4322914-3 (Version None)
Quarter: 2004Q1

REPORT INFORMATION
  Report Type: 
  Country: None (occurrence: None)
  Receive Date: 20040322
  Receipt Date: 20031113
  Transmission Date: 20041129
  Serious: Yes (Other)
  Sender: FDA-Public Use
  Company Number: 2003118774

PATIENT
  Age: 13 Year
  Sex: Male

DRUGS (2)
  1. VFEND [Suspect]
     Indication: SCEDOSPORIUM INFECTION
  2. CIPROFLOXACIN [Concomitant]

REACTIONS (6)
  - ARTHRALGIA [None]
  - BLOOD CREATINE PHOSPHOKINASE INCREASED [None]
  - CHEILITIS [None]
  - GENERALISED ERYTHEMA [None]
  - MYOSITIS [None]
  - TOXIC EPIDERMAL NECROLYSIS [None]
